FAERS Safety Report 9832840 (Version 1)
Quarter: 2014Q1

REPORT INFORMATION
  Report Type: Spontaneous
  Country: US (occurrence: US)
  Receive Date: 20140121
  Receipt Date: 20140121
  Transmission Date: 20141002
  Serious: Yes (Life-Threatening)
  Sender: FDA-Public Use
  Company Number: US-ROXANE LABORATORIES, INC.-2014-RO-00049RO

PATIENT
  Age: 35 Year
  Sex: Female
  Weight: 133 kg

DRUGS (10)
  1. QUETIAPINE FUMARATE [Suspect]
  2. LAMOTRIGINE [Suspect]
  3. VENLAFAXINE XR [Suspect]
  4. MIDAZOLAM [Suspect]
     Indication: PREMEDICATION
     Route: 042
  5. FENTANYL [Suspect]
     Indication: PREMEDICATION
     Route: 042
  6. FENTANYL [Suspect]
     Indication: INDUCTION OF ANAESTHESIA
     Route: 042
  7. LIDOCAINE [Suspect]
     Indication: INDUCTION OF ANAESTHESIA
     Route: 042
  8. PROPOFOL [Suspect]
     Indication: INDUCTION OF ANAESTHESIA
     Route: 042
  9. SUCCINYLCHOLINE [Suspect]
     Indication: ANAESTHESIA PROCEDURE
  10. DESFLURANE [Suspect]
     Indication: MAINTENANCE OF ANAESTHESIA

REACTIONS (1)
  - Hypotension [Recovered/Resolved]
